FAERS Safety Report 5204680-2 (Version None)
Quarter: 2007Q1

REPORT INFORMATION
  Report Type: 
  Country: None (occurrence: None)
  Receive Date: 20070110
  Receipt Date: 20060731
  Transmission Date: 20070707
  Serious: No
  Sender: FDA-Public Use
  Company Number: US-BRISTOL-MYERS SQUIBB COMPANY-13412127

PATIENT
  Age: 10 Year
  Sex: Male
  Weight: 35 kg

DRUGS (5)
  1. ABILIFY [Suspect]
     Indication: SUICIDAL IDEATION
     Dosage: 2.5 MG 3/21/06; 5 MG 3/22/06; 7.5 MG 3/27/06; 10 MG 4/03/06
     Route: 048
     Dates: start: 20060321, end: 20060405
  2. ABILIFY [Suspect]
     Indication: HOMICIDAL IDEATION
     Dosage: 2.5 MG 3/21/06; 5 MG 3/22/06; 7.5 MG 3/27/06; 10 MG 4/03/06
     Route: 048
     Dates: start: 20060321, end: 20060405
  3. ABILIFY [Suspect]
     Indication: AGGRESSION
     Dosage: 2.5 MG 3/21/06; 5 MG 3/22/06; 7.5 MG 3/27/06; 10 MG 4/03/06
     Route: 048
     Dates: start: 20060321, end: 20060405
  4. ABILIFY [Suspect]
     Indication: MAJOR DEPRESSION
     Dosage: 2.5 MG 3/21/06; 5 MG 3/22/06; 7.5 MG 3/27/06; 10 MG 4/03/06
     Route: 048
     Dates: start: 20060321, end: 20060405
  5. CLONIDINE [Concomitant]

REACTIONS (1)
  - EXTRAPYRAMIDAL DISORDER [None]
